FAERS Safety Report 10645011 (Version 1)
Quarter: 2014Q4

REPORT INFORMATION
  Report Type: Spontaneous
  Country: US (occurrence: None)
  Receive Date: 20141209
  Receipt Date: 20141209
  Transmission Date: 20150529
  Serious: Yes (Other)
  Sender: FDA-Public Use
  Company Number: 2653571

PATIENT
  Age: 57 Year

DRUGS (2)
  1. (CYCLOPHOSPHAMIDE) [Suspect]
     Active Substance: CYCLOPHOSPHAMIDE
     Indication: CHRONIC LYMPHOCYTIC LEUKAEMIA
     Dosage: 1500 MG MILLIGRAM(S) (1 WEEK) INTRAVENOUS (NOT OTHERWISE SPECIFIED)
     Dates: start: 20121110, end: 20130311
  2. VINCRISTINE SULPHATE INJECTION, USP {VINCRISTINE SULFATE) [Suspect]
     Active Substance: VINCRISTINE SULFATE
     Indication: CHRONIC LYMPHOCYTIC LEUKAEMIA
     Dosage: 2 MG MILLIGRAM(S), 1 WEEK, INTRAVENOUS (NOT OTHERWISE SPECIFIED)?
     Dates: start: 20121110, end: 20130311

REACTIONS (1)
  - Tumour lysis syndrome [None]

NARRATIVE: CASE EVENT DATE: 20130107
